FAERS Safety Report 8048609-0 (Version None)
Quarter: 2012Q1

REPORT INFORMATION
  Report Type: 
  Country: None (occurrence: None)
  Receive Date: 20120117
  Receipt Date: 20120112
  Transmission Date: 20120608
  Serious: Yes (Other)
  Sender: FDA-Public Use
  Company Number: US-PFIZER INC-2012010860

PATIENT
  Sex: Female
  Weight: 107 kg

DRUGS (7)
  1. VITAMIN C [Concomitant]
     Dosage: UNK,DAILY
  2. LITHIUM [Concomitant]
     Indication: DEPRESSION
     Dosage: 300 MG, 2X/DAY
  3. CELEBREX [Suspect]
     Indication: SPINAL OSTEOARTHRITIS
  4. TOPROL-XL [Concomitant]
     Indication: CARDIAC DISORDER
     Dosage: 100 MG, DAILY
  5. FISH OIL [Concomitant]
     Dosage: 1000 MG, DAILY
  6. CELEBREX [Suspect]
     Indication: OSTEOARTHRITIS
     Dosage: 200 MG, DAILY
     Route: 048
  7. LITHIUM [Concomitant]
     Indication: BIPOLAR DISORDER

REACTIONS (2)
  - ENDOCRINE DISORDER [None]
  - DIABETES MELLITUS [None]
